FAERS Safety Report 20161629 (Version 1)
Quarter: 2021Q4

REPORT INFORMATION
  Report Type: Spontaneous
  Country: US (occurrence: None)
  Receive Date: 20211208
  Receipt Date: 20211208
  Transmission Date: 20220303
  Serious: Yes (Other)
  Sender: FDA-Public Use
  Company Number: 2021A851999

PATIENT
  Age: 73 Year
  Sex: Female

DRUGS (2)
  1. FASLODEX [Suspect]
     Active Substance: FULVESTRANT
     Dosage: TWO SHOTS EVERY 30 DAYS
     Route: 030
  2. IBRANCE [Suspect]
     Active Substance: PALBOCICLIB
     Dosage: 125.0MG UNKNOWN
     Route: 065
     Dates: end: 202105

REACTIONS (4)
  - Malignant neoplasm progression [Unknown]
  - Diarrhoea [Unknown]
  - Arthralgia [Unknown]
  - Inappropriate schedule of product administration [Unknown]
